FAERS Safety Report 9501711 (Version 2)
Quarter: 2013Q3

REPORT INFORMATION
  Report Type: Spontaneous
  Country: FR (occurrence: FR)
  Receive Date: 20130905
  Receipt Date: 20130905
  Transmission Date: 20140515
  Serious: Yes (Hospitalization)
  Sender: FDA-Public Use
  Company Number: FR-PFIZER INC-K200900465

PATIENT
  Age: 54 Year
  Sex: Female

DRUGS (20)
  1. TRIATEC [Suspect]
     Dosage: UNK
     Route: 048
  2. ATARAX [Suspect]
     Dosage: UNK
     Route: 048
  3. LASILIX [Suspect]
     Dosage: UNK
     Route: 048
  4. MEDIATOR [Suspect]
     Indication: WEIGHT CONTROL
     Dosage: 2 DF, 1X/DAY
     Route: 048
     Dates: start: 200612, end: 200812
  5. MEDIATOR [Suspect]
     Dosage: 2 TO 3 TABLETS DAILY
     Route: 048
     Dates: start: 200612, end: 200812
  6. CARDENSIEL [Suspect]
     Dosage: UNK
     Route: 048
     Dates: start: 201012
  7. EFFEXOR [Suspect]
     Indication: DEPRESSIVE SYMPTOM
     Dosage: UNK
     Route: 048
     Dates: start: 2001
  8. EFFEXOR [Suspect]
     Dosage: UNK
     Route: 048
     Dates: start: 2008
  9. HEMIGOXINE NATIVELLE [Suspect]
     Dosage: UNK
     Route: 048
     Dates: start: 200810
  10. MONTELUKAST SODIUM [Concomitant]
     Dosage: UNK
  11. TRANXENE [Concomitant]
     Dosage: UNK
  12. LAROXYL [Concomitant]
     Indication: DEPRESSIVE SYMPTOM
     Dosage: UNK
     Dates: start: 2006
  13. OGAST [Concomitant]
     Dosage: UNK
  14. DETENSIEL [Concomitant]
     Dosage: UNK
  15. KENZEN [Concomitant]
     Dosage: UNK
  16. KARDEGIC [Concomitant]
     Dosage: UNK
     Route: 048
  17. ELISOR [Concomitant]
     Dosage: UNK
  18. ZYBAN [Concomitant]
     Dosage: UNK
     Dates: start: 200612, end: 200903
  19. TETRAZEPAM [Concomitant]
     Dosage: UNK
     Dates: start: 200612, end: 200903
  20. PAROXETINE HYDROCHLORIDE [Concomitant]
     Dosage: UNK
     Dates: start: 200612, end: 200903

REACTIONS (6)
  - Mitral valve incompetence [Recovered/Resolved with Sequelae]
  - Dyspnoea [Recovered/Resolved with Sequelae]
  - Aortic valve incompetence [Recovered/Resolved with Sequelae]
  - Left ventricular failure [Recovered/Resolved with Sequelae]
  - Tricuspid valve incompetence [Recovered/Resolved with Sequelae]
  - Pulmonary arterial hypertension [Recovered/Resolved with Sequelae]
